FAERS Safety Report 4734435-4 (Version None)
Quarter: 2005Q3

REPORT INFORMATION
  Report Type: 
  Country: None (occurrence: None)
  Receive Date: 20050804
  Receipt Date: 20050526
  Transmission Date: 20060218
  Serious: Yes (Hospitalization)
  Sender: FDA-Public Use
  Company Number: FR-ROCHE-405943

PATIENT
  Age: 41 Year
  Sex: Male
  Weight: 91 kg

DRUGS (2)
  1. PEGASYS [Suspect]
     Indication: HEPATITIS C
     Route: 058
     Dates: start: 20050115, end: 20050410
  2. SUBUTEX [Concomitant]
     Route: 048

REACTIONS (2)
  - BONE MARROW DEPRESSION [None]
  - PYREXIA [None]
